FAERS Safety Report 8266168-4 (Version None)
Quarter: 2012Q2

REPORT INFORMATION
  Report Type: 
  Country: None (occurrence: None)
  Receive Date: 20120406
  Receipt Date: 20120327
  Transmission Date: 20120825
  Serious: No
  Sender: FDA-Public Use
  Company Number: PHEH2011US010199

PATIENT
  Sex: Female
  Weight: 90.703 kg

DRUGS (12)
  1. TASIGNA [Suspect]
     Dosage: 150 MG, BID
     Route: 048
  2. LEVAQUIN [Concomitant]
     Dosage: 500 MG
  3. SPIRONOLACTONE [Concomitant]
     Dosage: 25 MG, UNK
  4. TYLENOL ARTHRITIS [Concomitant]
     Dosage: 650 MG, UNK
  5. VITAMIN D [Concomitant]
     Dosage: 400 U
  6. DEPAKOTE [Concomitant]
     Dosage: 500 MG
  7. OXYBUTYNIN [Concomitant]
     Dosage: 5 MG
  8. PREMARIN [Concomitant]
     Dosage: 0.625 MG, UNK
  9. STOOL SOFTENER [Concomitant]
     Dosage: 100 MG
  10. GLEEVEC [Suspect]
  11. ASPIRIN [Concomitant]
     Dosage: 81 MG, UNK
  12. VITAMIN B COMPLEX CAP [Concomitant]

REACTIONS (4)
  - ANAEMIA [None]
  - INCREASED UPPER AIRWAY SECRETION [None]
  - FATIGUE [None]
  - DECREASED APPETITE [None]
